FAERS Safety Report 7299543-5 (Version None)
Quarter: 2011Q1

REPORT INFORMATION
  Report Type: 
  Country: None (occurrence: None)
  Receive Date: 20110217
  Receipt Date: 20110202
  Transmission Date: 20110831
  Serious: Yes (Hospitalization)
  Sender: FDA-Public Use
  Company Number: DE-GENENTECH-313598

PATIENT
  Sex: Female

DRUGS (2)
  1. LUCENTIS [Suspect]
     Indication: MACULAR DEGENERATION
     Dosage: UNK
     Route: 031
     Dates: start: 20080101, end: 20100913
  2. MONOVALENT H1N1 VACCINE [Suspect]
     Indication: INFLUENZA
     Dosage: UNK
     Dates: start: 20091001

REACTIONS (7)
  - BLOOD GLUCOSE FLUCTUATION [None]
  - EYE DISORDER [None]
  - ALLERGY TO VACCINE [None]
  - DIZZINESS [None]
  - HYPOGLYCAEMIA [None]
  - PERIPHERAL VASCULAR DISORDER [None]
  - GAIT DISTURBANCE [None]
